FAERS Safety Report 5176395-0 (Version None)
Quarter: 2006Q4

REPORT INFORMATION
  Report Type: 
  Country: None (occurrence: None)
  Receive Date: 20061215
  Receipt Date: 20061208
  Transmission Date: 20070319
  Serious: Yes (Hospitalization, Disabling)
  Sender: FDA-Public Use
  Company Number: US-MERCK-0612USA01403

PATIENT
  Age: 30 Year
  Sex: Female

DRUGS (1)
  1. TIMOPTIC [Suspect]
     Indication: INTRAOCULAR PRESSURE TEST
     Route: 047
     Dates: start: 20000101

REACTIONS (1)
  - DIABETIC HYPERGLYCAEMIC COMA [None]
